FAERS Safety Report 8766421 (Version 2)
Quarter: 2012Q4

REPORT INFORMATION
  Report Type: 
  Country: IT (occurrence: IT)
  Receive Date: 20120904
  Receipt Date: 20120928
  Transmission Date: 20130627
  Serious: Yes (Other)
  Sender: FDA-Public Use
  Company Number: IT-ROCHE-1105195

PATIENT

DRUGS (1)
  1. MABTHERA [Suspect]
     Indication: THROMBOCYTOPENIA
     Dosage: standard dose rituximab (375 mg/mE2 weekly for 4 weeks) or low dose rituximab (100 total dose  weekl
     Route: 065

REACTIONS (7)
  - Serum sickness [Unknown]
  - Interstitial lung disease [Unknown]
  - Herpes zoster [Recovered/Resolved]
  - Breast hyperplasia [Unknown]
  - Lung neoplasm malignant [Unknown]
  - Appendix cancer [Unknown]
  - Adenoma benign [Unknown]
